FAERS Safety Report 6674057-1 (Version None)
Quarter: 2010Q1

REPORT INFORMATION
  Report Type: 
  Country: None (occurrence: None)
  Receive Date: 20100329
  Receipt Date: 20091105
  Transmission Date: 20100710
  Serious: Yes (Other)
  Sender: FDA-Public Use
  Company Number: 2009294514

PATIENT
  Sex: Male

DRUGS (1)
  1. GEODON [Suspect]
     Dosage: 80 MG, 2XDAY

REACTIONS (1)
  - MUSCLE RIGIDITY [None]
